FAERS Safety Report 18201669 (Version 7)
Quarter: 2021Q2

REPORT INFORMATION
  Report Type: Spontaneous
  Country: JP (occurrence: JP)
  Receive Date: 20200827
  Receipt Date: 20210610
  Transmission Date: 20210717
  Serious: Yes (Hospitalization, Other)
  Sender: FDA-Public Use
  Company Number: JP-ASTELLAS-2020JP011969

PATIENT
  Age: 66 Year
  Sex: Female

DRUGS (25)
  1. PREDONINE [Concomitant]
     Active Substance: PREDNISOLONE
     Indication: RHEUMATOID ARTHRITIS
     Dosage: UNK UNK, UNKNOWN FREQ.
     Route: 048
  2. PREDONINE [Concomitant]
     Active Substance: PREDNISOLONE
     Dosage: 1 MG, TWICE DAILY, 1 MG IN THE MORNING AND 1 MG IN THE EVENING
     Route: 048
  3. LOXONIN [Concomitant]
     Active Substance: LOXOPROFEN SODIUM
     Indication: RHEUMATOID ARTHRITIS
     Dosage: 100 MG, TWICE DAILY, MORNING AND EVENING
     Route: 048
  4. ZESULAN [Concomitant]
     Active Substance: MEQUITAZINE
     Indication: PRODUCT USED FOR UNKNOWN INDICATION
     Dosage: UNK UNK, UNKNOWN FREQ.
     Route: 048
  5. PROGRAF [Suspect]
     Active Substance: TACROLIMUS
     Dosage: 1 MG, ONCE DAILY, IN THE EVENING, TAKEN BY AROUND 17 O^CLOCK ON SELF?JUDGMENT
     Route: 048
     Dates: start: 20200812, end: 20200928
  6. ACINON [NIZATIDINE] [Concomitant]
     Indication: ABDOMINAL DISCOMFORT
     Dosage: UNK UNK, UNKNOWN FREQ, EVERY DAY AROUND 17 O^CLOCK
     Route: 048
  7. METHYCOBAL [Concomitant]
     Active Substance: METHYLCOBALAMIN
     Indication: PRODUCT USED FOR UNKNOWN INDICATION
     Dosage: UNK UNK, UNKNOWN FREQ.
     Route: 065
  8. STROCAIN [OXETACAINE] [Concomitant]
     Indication: ABDOMINAL PAIN UPPER
     Dosage: UNK UNK, UNKNOWN FREQ.
     Route: 048
  9. PROGRAF [Suspect]
     Active Substance: TACROLIMUS
     Dosage: 0.5 MG, ONCE DAILY, AFTER MEALS AROUND 15:00
     Route: 048
  10. RIMATIL [Suspect]
     Active Substance: BUCILLAMINE
     Indication: RHEUMATOID ARTHRITIS
     Dosage: 100 MG, TWICE DAILY, MORNING AND NIGHT
     Route: 048
  11. THIATON [Suspect]
     Active Substance: TIQUIZIUM BROMIDE
     Indication: PRODUCT USED FOR UNKNOWN INDICATION
     Dosage: UNK UNK, UNKNOWN FREQ.
     Route: 048
  12. ADALAT [Concomitant]
     Active Substance: NIFEDIPINE
     Indication: PRODUCT USED FOR UNKNOWN INDICATION
     Dosage: UNK UNK, UNKNOWN FREQ.
     Route: 048
  13. PROGRAF [Suspect]
     Active Substance: TACROLIMUS
     Route: 048
     Dates: end: 20210412
  14. CARERAM [Concomitant]
     Active Substance: IGURATIMOD
     Indication: PRODUCT USED FOR UNKNOWN INDICATION
     Dosage: UNK UNK, UNKNOWN FREQ.
     Route: 048
  15. REBAMIPIDE [Concomitant]
     Active Substance: REBAMIPIDE
     Indication: PRODUCT USED FOR UNKNOWN INDICATION
     Dosage: UNK UNK, THRICE DAILY
     Route: 048
  16. STROCAIN [OXETACAINE] [Concomitant]
     Indication: ABDOMINAL DISCOMFORT
  17. BISOPROLOL [Concomitant]
     Active Substance: BISOPROLOL
     Indication: PRODUCT USED FOR UNKNOWN INDICATION
     Dosage: UNK UNK, TWICE DAILY
     Route: 048
  18. PROGRAF [Suspect]
     Active Substance: TACROLIMUS
     Indication: RHEUMATOID ARTHRITIS
     Route: 048
  19. PROGRAF [Suspect]
     Active Substance: TACROLIMUS
     Route: 048
     Dates: start: 20210413
  20. RIMATIL [Suspect]
     Active Substance: BUCILLAMINE
     Dosage: 50 MG, TWICE DAILY, MORNING AND NIGHT
     Route: 048
  21. LOXONIN [Concomitant]
     Active Substance: LOXOPROFEN SODIUM
     Dosage: 60 MG/DAY, UNKNOWN FREQ.
     Route: 048
  22. BUTYLSCOPORAMINE [Concomitant]
     Indication: ABDOMINAL PAIN UPPER
     Dosage: UNK UNK, UNKNOWN FREQ.
     Route: 065
  23. NIFEDIPINE. [Concomitant]
     Active Substance: NIFEDIPINE
     Indication: PRODUCT USED FOR UNKNOWN INDICATION
     Dosage: UNK UNK, UNKNOWN FREQ.
     Route: 048
  24. PREDNISOLONE. [Concomitant]
     Active Substance: PREDNISOLONE
     Indication: RHEUMATOID ARTHRITIS
     Dosage: 1 MG, ONCE DAILY, MORNING
     Route: 048
  25. PREDNISOLONE. [Concomitant]
     Active Substance: PREDNISOLONE
     Dosage: 0.5 MG, TWICE DAILY, MORNING AND NIGHT
     Route: 048

REACTIONS (24)
  - Dysstasia [Unknown]
  - Cough [Recovering/Resolving]
  - Epigastric discomfort [Recovered/Resolved]
  - Investigation abnormal [Unknown]
  - Intentional product misuse [Unknown]
  - Abdominal pain [Unknown]
  - Paraesthesia oral [Unknown]
  - Flatulence [Unknown]
  - Body temperature fluctuation [Unknown]
  - Synovial cyst [Unknown]
  - Hypoaesthesia [Unknown]
  - Hypertension [Unknown]
  - Influenza [Unknown]
  - Abscess limb [Unknown]
  - Pain [Unknown]
  - Incisional hernia [Unknown]
  - Pyrexia [Recovering/Resolving]
  - Musculoskeletal stiffness [Unknown]
  - Abdominal discomfort [Unknown]
  - Joint effusion [Unknown]
  - Prescribed underdose [Unknown]
  - Helicobacter infection [Unknown]
  - Alopecia [Unknown]
  - Pain in extremity [Unknown]
